FAERS Safety Report 16773278 (Version 3)
Quarter: 2020Q1

REPORT INFORMATION
  Report Type: Report from Study
  Country: JP (occurrence: JP)
  Receive Date: 20190904
  Receipt Date: 20200305
  Transmission Date: 20200409
  Serious: Yes (Hospitalization, Other)
  Sender: FDA-Public Use
  Company Number: JP-GLAXOSMITHKLINE-JP2019JPN158396

PATIENT
  Age: 6 Decade
  Sex: Female
  Weight: 46 kg

DRUGS (24)
  1. LIMETHASON INTRAVENOUS INJECTION [Concomitant]
     Indication: SYSTEMIC LUPUS ERYTHEMATOSUS
     Dosage: 2.5 MG, EVERY 4 WEEKS
     Dates: start: 20171016
  2. LIMETHASON INTRAVENOUS INJECTION [Concomitant]
     Dosage: 2.5 MG, 1D
     Dates: start: 20190121, end: 20190121
  3. LIMETHASON INTRAVENOUS INJECTION [Concomitant]
     Dosage: 2.5 MG, 1D
     Dates: start: 20190218, end: 20190218
  4. LIMETHASON INTRAVENOUS INJECTION [Concomitant]
     Dosage: 2.5 MG, 1D
     Dates: start: 20181119, end: 20181119
  5. LIMETHASON INTRAVENOUS INJECTION [Concomitant]
     Dosage: 2.5 MG, 1D
     Dates: start: 20190415, end: 20190415
  6. LIMETHASON INTRAVENOUS INJECTION [Concomitant]
     Dosage: 2.5 MG, 1D
     Dates: start: 20190520, end: 20190520
  7. BONVIVA SYRINGES FOR INTRAVENOUS INJECTION [Concomitant]
     Dosage: 1 MG, EVERY MONTH
     Dates: start: 20170814
  8. LIMETHASON INTRAVENOUS INJECTION [Concomitant]
     Dosage: 2.5 MG, 1D
     Dates: start: 20180702, end: 20180702
  9. LIMETHASON INTRAVENOUS INJECTION [Concomitant]
     Dosage: 2.5 MG, 1D
     Dates: start: 20180827, end: 20180827
  10. LIMETHASON INTRAVENOUS INJECTION [Concomitant]
     Dosage: 2.5 MG, 1D
     Dates: start: 20181217, end: 20181217
  11. CALONAL TABLET [Concomitant]
     Dosage: 600 MG, 1D
     Dates: start: 20151130
  12. BELIMUMAB [Suspect]
     Active Substance: BELIMUMAB
     Dosage: 10 MG/KG, EVERY 4 WEEKS
     Route: 041
     Dates: start: 20180702, end: 20181119
  13. LIMETHASON INTRAVENOUS INJECTION [Concomitant]
     Dosage: 2.5 MG, 1D
     Dates: start: 20180730, end: 20180730
  14. LIMETHASON INTRAVENOUS INJECTION [Concomitant]
     Dosage: 2.5 MG, 1D
     Dates: start: 20180925, end: 20180925
  15. LIMETHASON INTRAVENOUS INJECTION [Concomitant]
     Dosage: 2.5 MG, 1D
     Dates: start: 20181018, end: 20181018
  16. LIMETHASON INTRAVENOUS INJECTION [Concomitant]
     Dosage: 2.5 MG, 1D
     Dates: start: 20190318, end: 20190318
  17. PREDNISOLONE TABLETS [Concomitant]
     Active Substance: PREDNISOLONE
     Indication: SYSTEMIC LUPUS ERYTHEMATOSUS
     Dosage: 1 MG, 1D
     Dates: start: 20160826
  18. AMLODIPINE OD TABLETS [Concomitant]
     Active Substance: AMLODIPINE BESYLATE
     Dosage: 5 MG, 1D
     Dates: start: 20150605
  19. BELIMUMAB [Suspect]
     Active Substance: BELIMUMAB
     Dosage: 10 MG/KG, EVERY 4 WEEKS
     Route: 041
     Dates: start: 20181217, end: 20190520
  20. LANSOPRAZOLE-OD TABLETS [Concomitant]
     Dosage: 15 MG, 1D
     Dates: start: 2014
  21. BELIMUMAB [Suspect]
     Active Substance: BELIMUMAB
     Indication: SYSTEMIC LUPUS ERYTHEMATOSUS
     Dosage: 10 MG/KG, EVERY 2 WEEKS
     Route: 041
     Dates: start: 20180618, end: 20180618
  22. LIMETHASON INTRAVENOUS INJECTION [Concomitant]
     Dosage: 2.5 MG, 1D
     Dates: start: 20180618, end: 20180618
  23. BUCILLAMINE TABLETS [Concomitant]
     Dosage: 100 MG, 1D
     Dates: start: 20160201
  24. KOLBET TABLETS [Concomitant]
     Dosage: 25 MG, 1D
     Dates: start: 20171016

REACTIONS (1)
  - Lymphoma [Not Recovered/Not Resolved]

NARRATIVE: CASE EVENT DATE: 20190531
